FAERS Safety Report 7583740-5 (Version None)
Quarter: 2011Q2

REPORT INFORMATION
  Report Type: 
  Country: None (occurrence: None)
  Receive Date: 20110630
  Receipt Date: 20110620
  Transmission Date: 20111010
  Serious: Yes (Other)
  Sender: FDA-Public Use
  Company Number: PT-ROCHE-778583

PATIENT
  Age: 80 Year
  Sex: Male

DRUGS (1)
  1. XELODA [Suspect]
     Dosage: DOSE: 50% OF THE DOSE DESCRIBED IN SPC, FREQUENCY: 21-21 DAYS
     Route: 065

REACTIONS (3)
  - BLOOD URIC ACID INCREASED [None]
  - GOUT [None]
  - CONDITION AGGRAVATED [None]
